FAERS Safety Report 6753074-7 (Version None)
Quarter: 2010Q2

REPORT INFORMATION
  Report Type: 
  Country: None (occurrence: None)
  Receive Date: 20100601
  Receipt Date: 20100524
  Transmission Date: 20101027
  Serious: Yes (Other)
  Sender: FDA-Public Use
  Company Number: 2010AL003055

PATIENT
  Age: 68 Year
  Sex: Female

DRUGS (4)
  1. EPIRUBICIN HYDROCHLORIDE [Suspect]
     Indication: BREAST CANCER STAGE I
  2. FLUOROURACIL [Concomitant]
  3. CYCLOPHOSPHAMIDE [Concomitant]
  4. TAMOXIFEN CITRATE [Concomitant]

REACTIONS (1)
  - ACUTE MYELOID LEUKAEMIA [None]
